FAERS Safety Report 6147016-5 (Version None)
Quarter: 2009Q2

REPORT INFORMATION
  Report Type: 
  Country: None (occurrence: None)
  Receive Date: 20090403
  Receipt Date: 20090324
  Transmission Date: 20091009
  Serious: Yes (Death, Other)
  Sender: FDA-Public Use
  Company Number: ADE2009-0515

PATIENT
  Age: 52 Year
  Sex: Female

DRUGS (11)
  1. AMOXICILLIN [Suspect]
  2. FLUOXETINE [Suspect]
  3. IBUPROFEN [Suspect]
  4. DOXEPIN HCL [Suspect]
  5. FENTANYL [Suspect]
  6. PREGABALIN CAPSULES [Suspect]
  7. ATORVASTATIN CALCIUM [Suspect]
  8. BUPROPION HCL [Suspect]
  9. METHOCARBAMOL [Suspect]
  10. OXYCODONE HCL [Suspect]
  11. TIZANIDINE HCL [Suspect]

REACTIONS (4)
  - CARDIAC ARREST [None]
  - COMPLETED SUICIDE [None]
  - DRUG TOXICITY [None]
  - RESPIRATORY ARREST [None]
